FAERS Safety Report 12693567 (Version 1)
Quarter: 2016Q3

REPORT INFORMATION
  Report Type: Spontaneous
  Country: US (occurrence: None)
  Receive Date: 20160826
  Receipt Date: 20160826
  Transmission Date: 20161109
  Serious: No
  Sender: FDA-Public Use
  Company Number: None

PATIENT
  Age: 51 Year
  Sex: Male

DRUGS (2)
  1. LONSURF [Suspect]
     Active Substance: TIPIRACIL HYDROCHLORIDE\TRIFLURIDINE
     Indication: COLON CANCER
     Dosage: 2 BID DAYS 1-12 BID ORAL
     Route: 048
     Dates: start: 20160726
  2. LONSURF [Suspect]
     Active Substance: TIPIRACIL HYDROCHLORIDE\TRIFLURIDINE
     Indication: COLON CANCER
     Dosage: 2 BID DAYS 1-12 OF 28 DAY CYCLE BID ORAL
     Route: 048
     Dates: start: 20160726

REACTIONS (1)
  - Nausea [None]

NARRATIVE: CASE EVENT DATE: 20160825
